FAERS Safety Report 4951660-8 (Version None)
Quarter: 2006Q1

REPORT INFORMATION
  Report Type: 
  Country: None (occurrence: None)
  Receive Date: 20060322
  Receipt Date: 20060322
  Transmission Date: 20060701
  Serious: Yes (Hospitalization)
  Sender: FDA-Public Use
  Company Number: None

PATIENT
  Age: 85 Year
  Sex: Male
  Weight: 79.2 kg

DRUGS (2)
  1. WARFARIN [Suspect]
     Indication: ATRIAL FIBRILLATION
     Dosage: 2 MG QD PO
     Route: 048
  2. AMIODARONE [Suspect]
     Indication: ATRIAL FIBRILLATION
     Dosage: 200 MG BID PO
     Route: 048

REACTIONS (2)
  - ARRHYTHMIA [None]
  - INTERNATIONAL NORMALISED RATIO INCREASED [None]
